FAERS Safety Report 10157069 (Version 2)
Quarter: 2014Q2

REPORT INFORMATION
  Report Type: Spontaneous
  Country: US (occurrence: US)
  Receive Date: 20140507
  Receipt Date: 20140513
  Transmission Date: 20141212
  Serious: No
  Sender: FDA-Public Use
  Company Number: US-PFIZER INC-2014122361

PATIENT
  Sex: Female

DRUGS (3)
  1. LYRICA [Suspect]
     Indication: FIBROMYALGIA
     Dosage: 1000 MG, DAILY (200MG 5 TIMES DAILY)
     Dates: start: 2012
  2. LYRICA [Suspect]
     Dosage: 600 MG, UNK
  3. LYRICA [Suspect]
     Dosage: 200 MG, UNK

REACTIONS (4)
  - Intentional product misuse [Unknown]
  - Drug withdrawal syndrome [Unknown]
  - Drug ineffective [Unknown]
  - Weight decreased [Unknown]
